FAERS Safety Report 19166952 (Version 1)
Quarter: 2021Q2

REPORT INFORMATION
  Report Type: Other
  Country: AT (occurrence: AT)
  Receive Date: 20210421
  Receipt Date: 20210421
  Transmission Date: 20210717
  Serious: Yes (Hospitalization)
  Sender: FDA-Public Use
  Company Number: AT-CELLTRION INC.-2018AT022036

PATIENT

DRUGS (23)
  1. EMEND [Concomitant]
     Active Substance: APREPITANT
     Dosage: ONGOING = CHECKED
     Dates: start: 20180809
  2. MOLAXOLE [Concomitant]
     Active Substance: POLYETHYLENE GLYCOL 3350\POTASSIUM CHLORIDE\SODIUM BICARBONATE\SODIUM CHLORIDE
     Dosage: ONGOING = CHECKED
  3. DEXAMETHASON [DEXAMETHASONE] [Concomitant]
     Active Substance: DEXAMETHASONE
     Dosage: ONGOING = CHECKED
     Dates: start: 20180628
  4. PERTUZUMAB. [Suspect]
     Active Substance: PERTUZUMAB
     Indication: BREAST CANCER
     Dosage: 840 MG, DAILY (MOST RECENT DOSE PRIOR TO THE EVENT: 19?JUL2018 )
     Route: 042
     Dates: start: 20180628, end: 20180719
  5. BISOPROLOL [Concomitant]
     Active Substance: BISOPROLOL
     Indication: LEFT VENTRICULAR DYSFUNCTION
     Dosage: UNK
     Dates: start: 20180809
  6. TRASTUZUMAB (UNKNOWN) [Suspect]
     Active Substance: TRASTUZUMAB
     Indication: BREAST CANCER
     Dosage: 8 MG, DAILY (MOST RECENT DOSE PRIOR TO THE EVENT: 19?JUL?2018)
     Route: 042
     Dates: start: 20180628, end: 20180628
  7. DOCETAXEL. [Suspect]
     Active Substance: DOCETAXEL
     Indication: BREAST CANCER
     Dosage: 50 MG, EVERY 3 WEEKS (MOST RECENT DOSE PRIOR TO THE EVENT: 19/JUL/2018)
     Route: 042
     Dates: start: 20180628, end: 20180628
  8. ZOFRAN [Concomitant]
     Active Substance: ONDANSETRON HYDROCHLORIDE
     Dosage: ONGOING = CHECKED
     Dates: start: 20180628
  9. ZOFRAN [Concomitant]
     Active Substance: ONDANSETRON HYDROCHLORIDE
     Dosage: ONGOING = CHECKED
     Dates: start: 20180715
  10. PANTOPRAZOL [PANTOPRAZOLE] [Concomitant]
     Active Substance: PANTOPRAZOLE
     Dosage: ONGOING = CHECKED
     Dates: start: 20180715
  11. TAXOTERE [Suspect]
     Active Substance: DOCETAXEL
     Indication: BREAST CANCER
     Dosage: 50 MG, EVERY 3 WEEKS (MOST RECENT DOSE PRIOR TO THE EVENT: 19/JUL2018)
     Route: 042
     Dates: start: 20180628, end: 20180719
  12. NOVALGIN (METAMIZOLE SODIUM) [Concomitant]
     Active Substance: METAMIZOLE SODIUM
     Dosage: ONGOING = CHECKED
     Dates: start: 20180615
  13. BIOFLORIN                          /07959901/ [Concomitant]
     Dosage: UNK
     Dates: start: 20181011, end: 20181020
  14. LOVENOX [Concomitant]
     Active Substance: ENOXAPARIN SODIUM
     Dosage: ONGOING = CHECKED
     Dates: start: 20180715
  15. NEULASTA [Concomitant]
     Active Substance: PEGFILGRASTIM
     Dosage: ONGOING = CHECKED
     Dates: start: 20180720
  16. DEXAMETHASON [DEXAMETHASONE] [Concomitant]
     Active Substance: DEXAMETHASONE
     Dosage: ONGOING = CHECKED
     Dates: start: 20180628
  17. HALCION [Concomitant]
     Active Substance: TRIAZOLAM
     Dosage: ONGOING = CHECKED
     Dates: start: 20181018
  18. XANOR [Concomitant]
     Active Substance: ALPRAZOLAM
     Dosage: ONGOING = NOT CHECKED
     Dates: start: 20180615, end: 20181015
  19. SPIRONO [Concomitant]
     Dosage: ONGOING = CHECKED
     Dates: start: 20180830
  20. ENALAPRIL [Concomitant]
     Active Substance: ENALAPRIL
     Indication: LEFT VENTRICULAR DYSFUNCTION
     Dosage: UNK
     Dates: start: 20180809
  21. PERTUZUMAB. [Suspect]
     Active Substance: PERTUZUMAB
     Dosage: 840 MG, DAILY (MOST RECENT DOSE PRIOR TO THE EVENT: 19/JUL/2018)
     Route: 042
     Dates: start: 20180628, end: 20180628
  22. FENISTIL [Concomitant]
     Active Substance: DIMETHINDENE
     Dosage: ONGOING = CHECKED
     Dates: start: 20180628
  23. TRASTUZUMAB (UNKNOWN) [Suspect]
     Active Substance: TRASTUZUMAB
     Dosage: 8 MG, DAILY (MOST RECENT DOSE PRIOR TO THE EVENT: 19?JUL?2018)
     Route: 042
     Dates: start: 20180719, end: 20180719

REACTIONS (5)
  - C-reactive protein increased [Recovered/Resolved]
  - Off label use [Unknown]
  - Left ventricular dysfunction [Recovered/Resolved]
  - Diarrhoea [Recovered/Resolved]
  - Underdose [Unknown]

NARRATIVE: CASE EVENT DATE: 20180809
